FAERS Safety Report 18688648 (Version 1)
Quarter: 2020Q4

REPORT INFORMATION
  Report Type: Spontaneous
  Country: US (occurrence: US)
  Receive Date: 20201231
  Receipt Date: 20201231
  Transmission Date: 20210114
  Serious: Yes (Hospitalization)
  Sender: FDA-Public Use
  Company Number: None

PATIENT
  Age: 58 Year
  Sex: Female
  Weight: 104.3 kg

DRUGS (16)
  1. BACLOFEN. [Concomitant]
     Active Substance: BACLOFEN
  2. LEVOTHYROXINE. [Concomitant]
     Active Substance: LEVOTHYROXINE
  3. INSULIN LISPRO AND INSULIN GLULISINE [Concomitant]
  4. ISOSORBIDE. [Concomitant]
     Active Substance: ISOSORBIDE
  5. OMEPRAZOLE. [Concomitant]
     Active Substance: OMEPRAZOLE
  6. BAMLANIVIMAB FOR EUA [Suspect]
     Active Substance: BAMLANIVIMAB
     Route: 042
     Dates: start: 20201222, end: 20201222
  7. CETIRIZINE [Concomitant]
     Active Substance: CETIRIZINE HYDROCHLORIDE
  8. DICLOFENAC GEL [Concomitant]
     Active Substance: DICLOFENAC
  9. EZETIMIBE. [Concomitant]
     Active Substance: EZETIMIBE
  10. GABAPENTIN. [Concomitant]
     Active Substance: GABAPENTIN
  11. METFORMIN [Concomitant]
     Active Substance: METFORMIN HYDROCHLORIDE
  12. METOPROLOL. [Concomitant]
     Active Substance: METOPROLOL
  13. ATORVASTATIN [Concomitant]
     Active Substance: ATORVASTATIN
  14. SEMAGLUTIDE [Concomitant]
     Active Substance: SEMAGLUTIDE
  15. ALBUTEROL. [Concomitant]
     Active Substance: ALBUTEROL
  16. FLUNISOLIDE INHALER [Concomitant]

REACTIONS (12)
  - Dizziness [None]
  - Abdominal pain [None]
  - Diabetic ketosis [None]
  - Troponin increased [None]
  - Dyspnoea [None]
  - Infusion related reaction [None]
  - Headache [None]
  - Blood glucose increased [None]
  - Tachycardia [None]
  - Nausea [None]
  - Blood electrolytes abnormal [None]
  - Unresponsive to stimuli [None]

NARRATIVE: CASE EVENT DATE: 20201224
